FAERS Safety Report 13740148 (Version 1)
Quarter: 2017Q3

REPORT INFORMATION
  Report Type: Spontaneous
  Country: US (occurrence: US)
  Receive Date: 20170710
  Receipt Date: 20170710
  Transmission Date: 20171127
  Serious: Yes (Other)
  Sender: FDA-Public Use
  Company Number: None

PATIENT
  Age: 80 Year
  Sex: Male
  Weight: 81 kg

DRUGS (8)
  1. WARFARIN [Concomitant]
     Active Substance: WARFARIN
  2. SPIRONOLACTONE. [Concomitant]
     Active Substance: SPIRONOLACTONE
  3. COREG [Concomitant]
     Active Substance: CARVEDILOL
  4. VENTOLIN [Concomitant]
     Active Substance: ALBUTEROL SULFATE
  5. PROCRIT [Suspect]
     Active Substance: ERYTHROPOIETIN
     Indication: ANAEMIA
     Dosage: ?          OTHER DOSE:ML;OTHER FREQUENCY:ONCE A WEEK;?
     Route: 058
     Dates: start: 20170707, end: 20170707
  6. LISINOPRIL. [Concomitant]
     Active Substance: LISINOPRIL
  7. MVI [Concomitant]
     Active Substance: VITAMINS
  8. LASIX [Concomitant]
     Active Substance: FUROSEMIDE

REACTIONS (3)
  - Vision blurred [None]
  - Pain [None]
  - Hypoaesthesia oral [None]

NARRATIVE: CASE EVENT DATE: 20170708
